FAERS Safety Report 10736498 (Version 1)
Quarter: 2015Q1

REPORT INFORMATION
  Report Type: Spontaneous
  Country: US (occurrence: None)
  Receive Date: 20150122
  Receipt Date: 20150122
  Transmission Date: 20150721
  Serious: No
  Sender: FDA-Public Use
  Company Number: None

PATIENT
  Age: 76 Year
  Sex: Male
  Weight: 99.79 kg

DRUGS (2)
  1. JUBLIA [Suspect]
     Active Substance: EFINACONAZOLE
     Indication: NAIL INFECTION
     Dosage: 1 DROP TO EACH NAIL (BIG TOES), ONCE DAILY, APPLIED TO A SURFACE, USUALLY THE SKIN
     Dates: start: 20150101, end: 20150121
  2. JUBLIA [Suspect]
     Active Substance: EFINACONAZOLE
     Indication: FUNGAL INFECTION
     Dosage: 1 DROP TO EACH NAIL (BIG TOES), ONCE DAILY, APPLIED TO A SURFACE, USUALLY THE SKIN
     Dates: start: 20150101, end: 20150121

REACTIONS (1)
  - Oral dysaesthesia [None]

NARRATIVE: CASE EVENT DATE: 20150121
